FAERS Safety Report 5800720-8 (Version None)
Quarter: 2008Q3

REPORT INFORMATION
  Report Type: 
  Country: None (occurrence: None)
  Receive Date: 20080703
  Receipt Date: 20080627
  Transmission Date: 20090109
  Serious: Yes (Hospitalization)
  Sender: FDA-Public Use
  Company Number: US-AMGEN-US157000

PATIENT
  Sex: Female

DRUGS (4)
  1. ENBREL [Suspect]
     Indication: RHEUMATOID ARTHRITIS
     Route: 058
     Dates: start: 20030103, end: 20050926
  2. PREDNISONE 50MG TAB [Concomitant]
     Route: 065
     Dates: start: 20050901, end: 20051101
  3. KETOPROFEN [Concomitant]
     Route: 065
  4. METHOTREXATE [Concomitant]
     Route: 065
     Dates: start: 20040101, end: 20051101

REACTIONS (1)
  - CHOLELITHIASIS [None]
